FAERS Safety Report 6495332-X (Version None)
Quarter: 2009Q4

REPORT INFORMATION
  Report Type: 
  Country: None (occurrence: None)
  Receive Date: 20091214
  Receipt Date: 20090603
  Transmission Date: 20100525
  Serious: No
  Sender: FDA-Public Use
  Company Number: US-BRISTOL-MYERS SQUIBB COMPANY-14647598

PATIENT
  Age: 22 Year
  Sex: Female
  Weight: 86 kg

DRUGS (4)
  1. ABILIFY [Suspect]
  2. LEXAPRO [Suspect]
  3. TOPAMAX [Concomitant]
  4. DEPO-PROVERA [Concomitant]

REACTIONS (3)
  - SPEECH DISORDER [None]
  - TARDIVE DYSKINESIA [None]
  - TREMOR [None]
